FAERS Safety Report 7437953-3 (Version None)
Quarter: 2011Q2

REPORT INFORMATION
  Report Type: 
  Country: None (occurrence: None)
  Receive Date: 20110426
  Receipt Date: 20110418
  Transmission Date: 20111010
  Serious: Yes (Other)
  Sender: FDA-Public Use
  Company Number: US-ELI_LILLY_AND_COMPANY-US201104005495

PATIENT
  Sex: Male
  Weight: 68.027 kg

DRUGS (2)
  1. CISPLATIN [Concomitant]
     Dosage: UNK, MONTHLY (1/M)
     Route: 065
  2. GEMCITABINE HYDROCHLORIDE [Suspect]
     Indication: URETHRAL CANCER
     Dosage: UNK, WEEKLY (1/W)
     Route: 065
     Dates: start: 20100601, end: 20110101

REACTIONS (3)
  - VENTRICULAR TACHYCARDIA [None]
  - ANAEMIA [None]
  - DYSPNOEA [None]
